FAERS Safety Report 7619271-3 (Version None)
Quarter: 2011Q3

REPORT INFORMATION
  Report Type: 
  Country: None (occurrence: None)
  Receive Date: 20110718
  Receipt Date: 20110713
  Transmission Date: 20111222
  Serious: No
  Sender: FDA-Public Use
  Company Number: US-ROXANE LABORATORIES, INC.-2011-RO-00987RO

PATIENT
  Sex: Female

DRUGS (1)
  1. ROXICET [Suspect]
     Indication: PAIN IN EXTREMITY
     Route: 048
     Dates: start: 20110707, end: 20110707

REACTIONS (2)
  - VOMITING [None]
  - DRUG INEFFECTIVE [None]
